FAERS Safety Report 4693902-2 (Version None)
Quarter: 2005Q2

REPORT INFORMATION
  Report Type: 
  Country: None (occurrence: None)
  Receive Date: 20050617
  Receipt Date: 20050609
  Transmission Date: 20051028
  Serious: Yes (Life-Threatening, Hospitalization)
  Sender: FDA-Public Use
  Company Number: FR-MERCK-0506FRA00047

PATIENT
  Age: 93 Year
  Sex: Female

DRUGS (5)
  1. ZOCOR [Suspect]
     Route: 048
     Dates: start: 20040310, end: 20040727
  2. POLYETHYLENE GLYCOL 4000 [Suspect]
     Indication: CONSTIPATION
     Route: 048
     Dates: end: 20040727
  3. SODIUM PHOSPHATE, DIBASIC AND SODIUM PHOSPHATE, MONOBASIC [Suspect]
     Route: 048
     Dates: start: 20040726, end: 20040727
  4. BISOPROLOL FUMARATE [Suspect]
     Indication: HYPERTENSION
     Route: 048
     Dates: end: 20040727
  5. ASPIRIN LYSINE [Concomitant]
     Route: 048
     Dates: end: 20040721

REACTIONS (13)
  - ABDOMINAL MASS [None]
  - ACUTE MYOCARDIAL INFARCTION [None]
  - ARRHYTHMIA [None]
  - CARDIO-RESPIRATORY ARREST [None]
  - CARDIOGENIC SHOCK [None]
  - DEHYDRATION [None]
  - DIARRHOEA [None]
  - DISEASE RECURRENCE [None]
  - HYPERNATRAEMIA [None]
  - HYPOKALAEMIA [None]
  - IRON DEFICIENCY ANAEMIA [None]
  - THROMBOSIS IN DEVICE [None]
  - VENTRICULAR ARRHYTHMIA [None]
